FAERS Safety Report 4607352-8 (Version None)
Quarter: 2005Q1

REPORT INFORMATION
  Report Type: 
  Country: None (occurrence: None)
  Receive Date: 20050311
  Receipt Date: 20050311
  Transmission Date: 20050727
  Serious: Yes (Disabling)
  Sender: FDA-Public Use
  Company Number: None

PATIENT
  Age: 67 Year
  Sex: Male
  Weight: 91.6266 kg

DRUGS (7)
  1. CIALIS [Suspect]
     Indication: ERECTILE DYSFUNCTION
  2. PLAVIX [Concomitant]
  3. LOTENSIN [Concomitant]
  4. LEVOXYL [Concomitant]
  5. NORVASC [Concomitant]
  6. POTASSIUM CHLORIDE [Concomitant]
  7. SINGULAIR [Concomitant]

REACTIONS (3)
  - BLINDNESS UNILATERAL [None]
  - RETINAL VEIN OCCLUSION [None]
  - VISION BLURRED [None]
